FAERS Safety Report 10736124 (Version 1)
Quarter: 2015Q1

REPORT INFORMATION
  Report Type: Spontaneous
  Country: JP (occurrence: None)
  Receive Date: 20150121
  Receipt Date: 20150121
  Transmission Date: 20150721
  Serious: Yes (Other)
  Sender: FDA-Public Use
  Company Number: COR_00223_2015

PATIENT
  Age: 68 Year
  Sex: Female

DRUGS (3)
  1. CARBOPLATIN. [Suspect]
     Active Substance: CARBOPLATIN
     Indication: NEUROENDOCRINE CARCINOMA
     Dosage: AUC = 5 ON DAY 1 OF THE CYCLE
  2. LOCAL IRRADIATION [Suspect]
     Active Substance: RADIATION THERAPY
     Indication: NEUROENDOCRINE CARCINOMA
     Dosage: TOTAL 60 GY; 2 GY IN 30 FRACTIONS
  3. ETOPOSIDE. [Suspect]
     Active Substance: ETOPOSIDE
     Indication: NEUROENDOCRINE CARCINOMA
     Dosage: ON DAYS 1-3 OF THE CYCLE

REACTIONS (10)
  - Respiratory failure [None]
  - Cerebral infarction [None]
  - Tumour lysis syndrome [None]
  - Respiratory paralysis [None]
  - Leukopenia [None]
  - Thrombocytopenia [None]
  - Fatigue [None]
  - Neutropenia [None]
  - Paraneoplastic neurological syndrome [None]
  - Loss of consciousness [None]
